FAERS Safety Report 9149154 (Version 1)
Quarter: 2013Q1

REPORT INFORMATION
  Report Type: Spontaneous
  Country: US (occurrence: US)
  Receive Date: 20130308
  Receipt Date: 20130308
  Transmission Date: 20140127
  Serious: No
  Sender: FDA-Public Use
  Company Number: US-ENDO PHARMACEUTICALS INC.-OPCR20121733

PATIENT
  Age: 21 Year
  Sex: Female

DRUGS (2)
  1. OPANA ER 20MG [Suspect]
     Indication: ABDOMINAL PAIN
     Route: 048
     Dates: start: 20120802
  2. OPANA ER 20MG [Concomitant]
     Indication: ABDOMINAL PAIN
     Route: 048
     Dates: start: 2012, end: 20120802

REACTIONS (3)
  - Feeling abnormal [Not Recovered/Not Resolved]
  - Withdrawal syndrome [Not Recovered/Not Resolved]
  - Drug effect decreased [Not Recovered/Not Resolved]
